FAERS Safety Report 11379748 (Version 7)
Quarter: 2017Q1

REPORT INFORMATION
  Report Type: Spontaneous
  Country: CA (occurrence: CA)
  Receive Date: 20150814
  Receipt Date: 20170109
  Transmission Date: 20170428
  Serious: Yes (Other)
  Sender: FDA-Public Use
  Company Number: CA-ROCHE-1620025

PATIENT
  Age: 63 Year
  Sex: Female

DRUGS (19)
  1. ACTEMRA [Suspect]
     Active Substance: TOCILIZUMAB
     Indication: PRODUCT USED FOR UNKNOWN INDICATION
     Dosage: THERAPY DURATION: 1 YEAR
     Route: 042
     Dates: start: 201101, end: 201203
  2. ENBREL [Suspect]
     Active Substance: ETANERCEPT
     Indication: RHEUMATOID ARTHRITIS
     Route: 058
     Dates: start: 200806
  3. LEFLUNOMIDE. [Suspect]
     Active Substance: LEFLUNOMIDE
     Indication: PRODUCT USED FOR UNKNOWN INDICATION
     Route: 065
     Dates: start: 200902, end: 200909
  4. AMLODIPINE [Concomitant]
     Active Substance: AMLODIPINE BESYLATE
  5. XELJANZ [Concomitant]
     Active Substance: TOFACITINIB CITRATE
     Route: 065
     Dates: start: 20140710
  6. ELETRIPTAN [Concomitant]
     Active Substance: ELETRIPTAN
  7. HUMIRA [Suspect]
     Active Substance: ADALIMUMAB
     Indication: PRODUCT USED FOR UNKNOWN INDICATION
     Route: 058
     Dates: start: 200809
  8. ORENCIA [Suspect]
     Active Substance: ABATACEPT
     Route: 042
  9. KINERET [Suspect]
     Active Substance: ANAKINRA
     Indication: PRODUCT USED FOR UNKNOWN INDICATION
     Route: 058
     Dates: start: 201203, end: 201406
  10. METHOTREXATE. [Suspect]
     Active Substance: METHOTREXATE
     Route: 058
     Dates: start: 201404
  11. DILAUDID [Concomitant]
     Active Substance: HYDROMORPHONE HYDROCHLORIDE
  12. LEFLUNOMIDE. [Suspect]
     Active Substance: LEFLUNOMIDE
     Route: 065
  13. KINERET [Suspect]
     Active Substance: ANAKINRA
     Route: 058
  14. PREDNISONE. [Concomitant]
     Active Substance: PREDNISONE
  15. HYDROMORPH CONTIN [Concomitant]
     Active Substance: HYDROMORPHONE
  16. CIMZIA [Concomitant]
     Active Substance: CERTOLIZUMAB PEGOL
  17. HYDROXYCHLOROQUINE [Suspect]
     Active Substance: HYDROXYCHLOROQUINE
     Indication: PRODUCT USED FOR UNKNOWN INDICATION
     Route: 065
  18. ORENCIA [Suspect]
     Active Substance: ABATACEPT
     Indication: PRODUCT USED FOR UNKNOWN INDICATION
     Route: 042
     Dates: end: 201011
  19. METHOTREXATE. [Suspect]
     Active Substance: METHOTREXATE
     Indication: PRODUCT USED FOR UNKNOWN INDICATION
     Route: 048

REACTIONS (10)
  - Rash [Unknown]
  - Drug intolerance [Unknown]
  - Cutaneous vasculitis [Unknown]
  - Secretion discharge [Unknown]
  - Rheumatoid arthritis [Unknown]
  - Synovitis [Unknown]
  - Spinal column stenosis [Unknown]
  - Treatment failure [Unknown]
  - Oral mucosal exfoliation [Unknown]
  - Drug ineffective [Unknown]
